FAERS Safety Report 12452913 (Version 1)
Quarter: 2016Q2

REPORT INFORMATION
  Report Type: Spontaneous
  Country: US (occurrence: US)
  Receive Date: 20160609
  Receipt Date: 20160609
  Transmission Date: 20160815
  Serious: No
  Sender: FDA-Public Use
  Company Number: US-PFIZER INC-2016262579

PATIENT
  Age: 64 Year
  Sex: Female

DRUGS (3)
  1. LYRICA [Suspect]
     Active Substance: PREGABALIN
     Indication: NEUROPATHY PERIPHERAL
     Dosage: 675 MG, DAILY (TAKING LYRICA 675 MG DAILY IN DIVIDED DOSES)
  2. LYRICA [Suspect]
     Active Substance: PREGABALIN
     Dosage: 600 MG, DAILY
  3. LYRICA [Suspect]
     Active Substance: PREGABALIN
     Dosage: 300 MG, 2X/DAY

REACTIONS (2)
  - Drug effect decreased [Unknown]
  - Prescribed overdose [Unknown]
